FAERS Safety Report 6294228-6 (Version None)
Quarter: 2009Q3

REPORT INFORMATION
  Report Type: 
  Country: None (occurrence: None)
  Receive Date: 20090803
  Receipt Date: 20090323
  Transmission Date: 20100115
  Serious: No
  Sender: FDA-Public Use
  Company Number: A0774779A

PATIENT
  Age: 57 Year
  Sex: Male

DRUGS (1)
  1. NICORETTE [Suspect]
     Dates: end: 20090323

REACTIONS (1)
  - RASH [None]
